FAERS Safety Report 10427683 (Version 5)
Quarter: 2015Q2

REPORT INFORMATION
  Report Type: Spontaneous
  Country: JP (occurrence: JP)
  Receive Date: 20140903
  Receipt Date: 20150630
  Transmission Date: 20150821
  Serious: Yes (Hospitalization, Other)
  Sender: FDA-Public Use
  Company Number: PHHY2014JP102506

PATIENT
  Age: 37 Year
  Sex: Male

DRUGS (26)
  1. NEORAL [Suspect]
     Active Substance: CYCLOSPORINE
     Dosage: 300 MG, QD
     Route: 048
  2. MYCOPHENOLATE MOFETIL. [Suspect]
     Active Substance: MYCOPHENOLATE MOFETIL
     Indication: IMMUNOSUPPRESSION
     Dosage: 1500 MG, DAILY
     Route: 048
  3. MYCOPHENOLATE MOFETIL. [Suspect]
     Active Substance: MYCOPHENOLATE MOFETIL
     Dosage: 1000 MG, DAILY
     Route: 065
     Dates: end: 201101
  4. METHYLPREDNISOLONE. [Suspect]
     Active Substance: METHYLPREDNISOLONE
     Indication: IMMUNOSUPPRESSION
     Dosage: 4 MG, DAILY
     Route: 048
     Dates: end: 201101
  5. SIMULECT [Concomitant]
     Active Substance: BASILIXIMAB
     Dosage: 20 MG, UNK
     Route: 041
  6. NEORAL [Suspect]
     Active Substance: CYCLOSPORINE
     Dosage: 280 MG, QD
     Route: 048
     Dates: end: 201306
  7. RITUXIMAB [Suspect]
     Active Substance: RITUXIMAB
     Indication: RENAL TRANSPLANT
     Dosage: 100 MG/M2, UNK
     Route: 065
  8. RITUXIMAB [Suspect]
     Active Substance: RITUXIMAB
     Indication: IMMUNOSUPPRESSION
  9. SIMULECT [Concomitant]
     Active Substance: BASILIXIMAB
     Indication: PRODUCT USED FOR UNKNOWN INDICATION
     Dosage: 20 MG, BID
     Route: 041
  10. NEORAL [Suspect]
     Active Substance: CYCLOSPORINE
     Indication: IMMUNOSUPPRESSION
     Dosage: 300 MG, DAILY
     Route: 048
  11. TACROLIMUS. [Suspect]
     Active Substance: TACROLIMUS
     Indication: RENAL TRANSPLANT
     Route: 065
  12. BREDININ [Concomitant]
     Active Substance: MIZORIBINE
     Indication: PRODUCT USED FOR UNKNOWN INDICATION
     Route: 065
  13. NEORAL [Suspect]
     Active Substance: CYCLOSPORINE
     Dosage: 280 MG, DAILY
     Route: 048
     Dates: end: 201306
  14. NEORAL [Suspect]
     Active Substance: CYCLOSPORINE
     Dosage: 250 MG, QD
     Route: 048
     Dates: start: 201003
  15. EVEROLIMUS [Suspect]
     Active Substance: EVEROLIMUS
     Indication: RENAL TRANSPLANT
     Dosage: 1.5 MG, DAILY
     Route: 065
  16. EVEROLIMUS [Suspect]
     Active Substance: EVEROLIMUS
     Indication: IMMUNOSUPPRESSION
     Dosage: 2.5 MG, DAILY
     Route: 065
  17. BASILIXIMAB [Suspect]
     Active Substance: BASILIXIMAB
     Indication: RENAL TRANSPLANT
     Dosage: 20 MG, BID
     Route: 065
  18. TACROLIMUS. [Suspect]
     Active Substance: TACROLIMUS
     Indication: IMMUNOSUPPRESSION
  19. NEORAL [Suspect]
     Active Substance: CYCLOSPORINE
     Indication: RENAL TRANSPLANT
     Dosage: 250 MG, DAILY
     Route: 048
     Dates: start: 201003
  20. EVEROLIMUS [Suspect]
     Active Substance: EVEROLIMUS
     Route: 065
  21. BASILIXIMAB [Suspect]
     Active Substance: BASILIXIMAB
     Indication: IMMUNOSUPPRESSION
     Dosage: 20 MG, QD
     Route: 041
  22. MYCOPHENOLATE MOFETIL. [Suspect]
     Active Substance: MYCOPHENOLATE MOFETIL
     Indication: RENAL TRANSPLANT
     Dosage: 1000 MG, DAILY
     Route: 048
     Dates: start: 201003
  23. MYCOPHENOLATE MOFETIL. [Suspect]
     Active Substance: MYCOPHENOLATE MOFETIL
     Dosage: 500 MG, DAILY
     Route: 048
  24. METHYLPREDNISOLONE. [Suspect]
     Active Substance: METHYLPREDNISOLONE
     Indication: RENAL TRANSPLANT
     Dosage: 16 MG, DAILY
     Route: 048
  25. METHYLPREDNISOLONE. [Suspect]
     Active Substance: METHYLPREDNISOLONE
     Dosage: 500 MG, QD
     Route: 042
  26. BASILIXIMAB [Suspect]
     Active Substance: BASILIXIMAB
     Dosage: 20 MG, QD
     Route: 041

REACTIONS (9)
  - Kidney transplant rejection [Unknown]
  - Blood creatinine increased [Unknown]
  - Pancytopenia [Recovered/Resolved]
  - Chronic allograft nephropathy [Unknown]
  - Toxicity to various agents [Recovering/Resolving]
  - Cystitis viral [Recovered/Resolved]
  - Bone marrow failure [Unknown]
  - Haematuria [Unknown]
  - Therapeutic response decreased [Unknown]

NARRATIVE: CASE EVENT DATE: 201006
